FAERS Safety Report 16903711 (Version 4)
Quarter: 2020Q2

REPORT INFORMATION
  Report Type: Spontaneous
  Country: US (occurrence: US)
  Receive Date: 20191010
  Receipt Date: 20200519
  Transmission Date: 20200713
  Serious: No
  Sender: FDA-Public Use
  Company Number: US-PFIZER INC-2019435733

PATIENT
  Age: 71 Year
  Sex: Female

DRUGS (3)
  1. NOVOCAIN [Suspect]
     Active Substance: PROCAINE HYDROCHLORIDE
     Dosage: UNK
  2. EPINEPHRINE. [Suspect]
     Active Substance: EPINEPHRINE
     Dosage: UNK
  3. TAXOTERE [Suspect]
     Active Substance: DOCETAXEL
     Dosage: UNK

REACTIONS (1)
  - Drug hypersensitivity [Unknown]
